FAERS Safety Report 7268113-7 (Version None)
Quarter: 2011Q1

REPORT INFORMATION
  Report Type: 
  Country: None (occurrence: None)
  Receive Date: 20110201
  Receipt Date: 20110128
  Transmission Date: 20110831
  Serious: No
  Sender: FDA-Public Use
  Company Number: US-PFIZER INC-2011021003

PATIENT
  Sex: Female

DRUGS (11)
  1. PRISTIQ [Suspect]
     Indication: ANXIETY
  2. CYCLOBENZAPRINE [Concomitant]
     Indication: PAIN
     Dosage: 10 MG, 4X/DAY
  3. PERPHENAZINE [Concomitant]
     Indication: MOOD ALTERED
     Dosage: 2 MG, 2X/DAY
  4. ACETAMINOPHEN AND HYDROCODONE BITARTRATE [Concomitant]
     Indication: PAIN
     Dosage: 10/325, 6X/DAY
  5. PRISTIQ [Suspect]
     Indication: DEPRESSION
     Dosage: 50 MG, 1X/DAY
     Route: 048
     Dates: start: 20080401
  6. CYMBALTA [Concomitant]
     Indication: DEPRESSION
     Dosage: 50 MG, 1X/DAY
     Route: 048
  7. LEVOTHYROXINE [Concomitant]
     Indication: HYPERTHYROIDISM
     Dosage: 100 UG, 1X/DAY
  8. PRISTIQ [Suspect]
     Indication: BIPOLAR DISORDER
  9. CYMBALTA [Concomitant]
     Indication: ANXIETY
  10. YAZ [Concomitant]
     Indication: PREMENSTRUAL SYNDROME
     Dosage: UNK
     Route: 048
  11. CLONAZEPAM [Concomitant]
     Indication: ANXIETY
     Dosage: 2 MG, 4X/DAY

REACTIONS (1)
  - MEDICATION RESIDUE [None]
